FAERS Safety Report 5789413-3 (Version None)
Quarter: 2008Q2

REPORT INFORMATION
  Report Type: 
  Country: None (occurrence: None)
  Receive Date: 20080623
  Receipt Date: 20080616
  Transmission Date: 20081010
  Serious: Yes (Life-Threatening, Hospitalization)
  Sender: FDA-Public Use
  Company Number: TCI2006A00008

PATIENT
  Age: 86 Year
  Sex: Female

DRUGS (14)
  1. TAKEPRON CAPULES 30 (LANSOPRAZOLE) (CAPSULES) [Suspect]
     Indication: REFLUX OESOPHAGITIS
     Dosage: 30 MG (30 MG, 1 IN 1 D)
     Route: 048
     Dates: start: 19990101, end: 19990101
  2. TAKEPRON CAPULES 30 (LANSOPRAZOLE) (CAPSULES) [Suspect]
     Indication: REFLUX OESOPHAGITIS
     Dosage: 30 MG (30 MG, 1 IN 1 D)
     Route: 048
     Dates: start: 20000101, end: 20000101
  3. TAKEPRON CAPULES 30 (LANSOPRAZOLE) (CAPSULES) [Suspect]
     Indication: REFLUX OESOPHAGITIS
     Dosage: 30 MG (30 MG, 1 IN 1 D)
     Route: 048
     Dates: start: 20000120, end: 20000301
  4. TAKEPRON CAPULES 30 (LANSOPRAZOLE) (CAPSULES) [Suspect]
     Indication: REFLUX OESOPHAGITIS
     Dosage: 30 MG (30 MG, 1 IN 1 D)
     Route: 048
     Dates: start: 20001201
  5. TAKEPRON CAPULES 30 (LANSOPRAZOLE) (CAPSULES) [Suspect]
     Indication: REFLUX OESOPHAGITIS
     Dosage: 30 MG (30 MG, 1 IN 1 D)
     Route: 048
     Dates: start: 19990101
  6. LANSOPRAZOLE [Suspect]
     Indication: REFLUX OESOPHAGITIS
     Dosage: PER ORAL; 15 MG (15 MG, 1 IN 1 D)
     Route: 048
     Dates: start: 20020101, end: 20050601
  7. LANSOPRAZOLE [Suspect]
     Indication: REFLUX OESOPHAGITIS
     Dosage: PER ORAL; 15 MG (15 MG, 1 IN 1 D)
     Route: 048
     Dates: start: 20020701
  8. LANSOPRAZOLE [Suspect]
     Indication: REFLUX OESOPHAGITIS
     Dosage: PER ORAL; 15 MG (15 MG, 1 IN 1 D)
     Route: 048
     Dates: start: 20021101
  9. ZANTAC (RANITIDINE HYDROCHLORIDE) (TABLETS) [Concomitant]
  10. PRIMPERAN TAB [Concomitant]
  11. SELBEX (TEPRENONE) [Concomitant]
  12. FK (FK) (POWDER) [Concomitant]
  13. CIMETIDINE HCL [Concomitant]
  14. SUCRALFATE [Concomitant]

REACTIONS (14)
  - ABASIA [None]
  - ASTHENIA [None]
  - CARDIAC HYPERTROPHY [None]
  - COLON CANCER [None]
  - DIZZINESS [None]
  - DRUG ERUPTION [None]
  - DRUG INEFFECTIVE [None]
  - INSOMNIA [None]
  - IRON DEFICIENCY ANAEMIA [None]
  - MALAISE [None]
  - METASTASES TO BONE [None]
  - RENAL CYST [None]
  - RHABDOMYOLYSIS [None]
  - SPINAL COMPRESSION FRACTURE [None]
